FAERS Safety Report 16680201 (Version 4)
Quarter: 2022Q4

REPORT INFORMATION
  Report Type: Spontaneous
  Country: JP (occurrence: JP)
  Receive Date: 20190807
  Receipt Date: 20221216
  Transmission Date: 20230112
  Serious: Yes (Hospitalization)
  Sender: FDA-Public Use
  Company Number: PHHY2019JP181511

PATIENT
  Age: 27 Year
  Sex: Female

DRUGS (2)
  1. FINGOLIMOD HYDROCHLORIDE [Suspect]
     Active Substance: FINGOLIMOD HYDROCHLORIDE
     Indication: Relapsing-remitting multiple sclerosis
     Dosage: 0.5 MG, QD
     Route: 048
  2. METHYLPREDNISOLONE [Concomitant]
     Active Substance: METHYLPREDNISOLONE
     Indication: Relapsing-remitting multiple sclerosis
     Dosage: UNK (PULSE THERAPY)
     Route: 042

REACTIONS (2)
  - Extradural haematoma [Recovered/Resolved]
  - Lymphopenia [Recovered/Resolved]
